FAERS Safety Report 22736789 (Version 5)
Quarter: 2023Q4

REPORT INFORMATION
  Report Type: Report from Study
  Country: IT (occurrence: IT)
  Receive Date: 20230721
  Receipt Date: 20231218
  Transmission Date: 20240110
  Serious: Yes (Hospitalization)
  Sender: FDA-Public Use
  Company Number: IT-002147023-NVSC2022IT221052

PATIENT
  Age: 6 Year
  Sex: Male
  Weight: 32 kg

DRUGS (12)
  1. MEKINIST [Suspect]
     Active Substance: TRAMETINIB DIMETHYL SULFOXIDE
     Indication: Astrocytoma, low grade
     Dosage: 0.65 MG
     Route: 048
     Dates: start: 20220829, end: 20220928
  2. MEKINIST [Suspect]
     Active Substance: TRAMETINIB DIMETHYL SULFOXIDE
     Dosage: 0.4 MG
     Route: 048
     Dates: end: 20221023
  3. MEKINIST [Suspect]
     Active Substance: TRAMETINIB DIMETHYL SULFOXIDE
     Dosage: 0.325 MG (7.5 ML/DAY)
     Route: 048
     Dates: start: 20221024, end: 20230714
  4. MEKINIST [Suspect]
     Active Substance: TRAMETINIB DIMETHYL SULFOXIDE
     Dosage: 7.5 ML, QD
     Route: 065
     Dates: start: 20230721
  5. MEKINIST [Suspect]
     Active Substance: TRAMETINIB DIMETHYL SULFOXIDE
     Dosage: 0.375 MG, QD
     Route: 048
     Dates: end: 20230909
  6. MEKINIST [Suspect]
     Active Substance: TRAMETINIB DIMETHYL SULFOXIDE
     Dosage: 0.375 MG, QD
     Route: 048
     Dates: start: 20230921
  7. TRIPTORELIN [Concomitant]
     Active Substance: TRIPTORELIN
     Indication: Precocious puberty
     Dosage: UNK
     Route: 065
  8. DESMOPRESSIN [Concomitant]
     Active Substance: DESMOPRESSIN
     Indication: Hypopituitarism
     Dosage: UNK
     Route: 065
  9. DESMOPRESSIN [Concomitant]
     Active Substance: DESMOPRESSIN
     Indication: Diabetes insipidus
  10. NORVASC [Concomitant]
     Active Substance: AMLODIPINE BESYLATE
     Indication: Product used for unknown indication
     Dosage: 2.5 MG, QD
     Route: 065
  11. DECAPEPTYL [Concomitant]
     Indication: Precocious puberty
     Dosage: 3.75 MG (EVERY 28 DAYS)
     Route: 065
  12. MINIRIN [Concomitant]
     Active Substance: DESMOPRESSIN ACETATE
     Indication: Product used for unknown indication
     Dosage: 60 UG, TID
     Route: 048

REACTIONS (6)
  - Blood creatine phosphokinase increased [Recovered/Resolved with Sequelae]
  - Haematuria [Recovered/Resolved]
  - Red blood cells urine [Unknown]
  - Cheilitis [Recovered/Resolved with Sequelae]
  - Stomatitis [Recovered/Resolved with Sequelae]
  - Hypertension [Recovered/Resolved]

NARRATIVE: CASE EVENT DATE: 20220927
